FAERS Safety Report 7887349-5 (Version None)
Quarter: 2011Q4

REPORT INFORMATION
  Report Type: 
  Country: None (occurrence: None)
  Receive Date: 20111102
  Receipt Date: 20110718
  Transmission Date: 20120403
  Serious: No
  Sender: FDA-Public Use
  Company Number: US-AMGEN-USASP2011036521

PATIENT
  Age: 44 Year
  Sex: Female

DRUGS (1)
  1. ENBREL [Suspect]
     Indication: RHEUMATOID ARTHRITIS
     Dosage: 50 MG, QWK
     Dates: start: 20110520

REACTIONS (8)
  - INJECTION SITE ERYTHEMA [None]
  - MICTURITION URGENCY [None]
  - PYREXIA [None]
  - ERYTHEMA [None]
  - INJECTION SITE HAEMATOMA [None]
  - POLLAKIURIA [None]
  - MALAISE [None]
  - HEADACHE [None]
